FAERS Safety Report 10301414 (Version 2)
Quarter: 2014Q3

REPORT INFORMATION
  Report Type: Report from Study
  Country: CA (occurrence: CA)
  Receive Date: 20140714
  Receipt Date: 20140718
  Transmission Date: 20150326
  Serious: Yes (Hospitalization, Other)
  Sender: FDA-Public Use
  Company Number: CA-JNJFOC-20140706107

PATIENT
  Age: 0 Year
  Sex: Female
  Weight: 3.52 kg

DRUGS (2)
  1. REMICADE [Suspect]
     Active Substance: INFLIXIMAB
     Indication: RHEUMATOID ARTHRITIS
     Route: 064
     Dates: start: 200511
  2. REMICADE [Suspect]
     Active Substance: INFLIXIMAB
     Indication: RHEUMATOID ARTHRITIS
     Dosage: APPROX 20TH WEEK OF PREGNANCY
     Route: 064
     Dates: start: 20140131

REACTIONS (3)
  - Foetal exposure during pregnancy [Recovered/Resolved]
  - Large for dates baby [Recovered/Resolved]
  - Premature baby [Not Recovered/Not Resolved]

NARRATIVE: CASE EVENT DATE: 2013
